FAERS Safety Report 25181016 (Version 4)
Quarter: 2025Q2

REPORT INFORMATION
  Report Type: Spontaneous
  Country: DE (occurrence: DE)
  Receive Date: 20250409
  Receipt Date: 20250523
  Transmission Date: 20250716
  Serious: Yes (Other)
  Sender: JOHNSON AND JOHNSON
  Company Number: DE-JNJFOC-20250406869

PATIENT
  Age: 89 Year
  Sex: Male

DRUGS (6)
  1. ERLEADA [Suspect]
     Active Substance: APALUTAMIDE
     Indication: Hormone-dependent prostate cancer
     Route: 048
  2. ERLEADA [Suspect]
     Active Substance: APALUTAMIDE
     Route: 048
  3. ZOPICLONE [Interacting]
     Active Substance: ZOPICLONE
     Indication: Insomnia
     Route: 048
  4. TORSEMIDE [Concomitant]
     Active Substance: TORSEMIDE
     Indication: Product used for unknown indication
  5. PESOL [Concomitant]
     Indication: Product used for unknown indication
  6. PROVELYN [Concomitant]
     Indication: Product used for unknown indication

REACTIONS (7)
  - Polyneuropathy [Unknown]
  - Pain in extremity [Unknown]
  - Off label use [Unknown]
  - Pruritus [Unknown]
  - Drug interaction [Unknown]
  - Drug ineffective [Unknown]
  - Insomnia [Unknown]
